FAERS Safety Report 7523540-5 (Version None)
Quarter: 2011Q2

REPORT INFORMATION
  Report Type: 
  Country: None (occurrence: None)
  Receive Date: 20110601
  Receipt Date: 20110601
  Transmission Date: 20111010
  Serious: Yes (Other)
  Sender: FDA-Public Use
  Company Number: None

PATIENT
  Age: 53 Year
  Sex: Male
  Weight: 63.5036 kg

DRUGS (5)
  1. RITONAVIR [Suspect]
     Indication: HIV INFECTION
     Dosage: 100MG QD PO
     Route: 048
     Dates: start: 20100501, end: 20110517
  2. FENAFIBRATE [Concomitant]
  3. TRAVADA [Concomitant]
  4. LEXIVA [Suspect]
     Indication: HIV INFECTION
     Dosage: 1400MG QD PO
     Route: 048
     Dates: start: 20100501, end: 20110517
  5. PRAVASTATIN [Concomitant]

REACTIONS (1)
  - HYPERCHOLESTEROLAEMIA [None]
